FAERS Safety Report 4898582-9 (Version None)
Quarter: 2006Q1

REPORT INFORMATION
  Report Type: 
  Country: None (occurrence: None)
  Receive Date: 20060130
  Receipt Date: 20060120
  Transmission Date: 20060701
  Serious: Yes (Hospitalization)
  Sender: FDA-Public Use
  Company Number: 2006-01-1253

PATIENT
  Age: 70 Year
  Sex: Male
  Weight: 84 kg

DRUGS (2)
  1. INTRON A [Suspect]
     Indication: RENAL NEOPLASM
     Dosage: 6 MIU TIW SUBCUTANEOUS
     Route: 058
     Dates: start: 20050315, end: 20050915
  2. AVASTIN [Suspect]
     Indication: RENAL NEOPLASM
     Dosage: 800 MG Q15D INTRAVENOUS
     Route: 042
     Dates: start: 20051024, end: 20051108

REACTIONS (7)
  - CONDITION AGGRAVATED [None]
  - DISEASE PROGRESSION [None]
  - GLOMERULAR FILTRATION RATE DECREASED [None]
  - HAPTOGLOBIN DECREASED [None]
  - HYPERTENSION [None]
  - MALIGNANT NEOPLASM PROGRESSION [None]
  - THROMBOCYTOPENIA [None]
